FAERS Safety Report 9965641 (Version 1)
Quarter: 2014Q1

REPORT INFORMATION
  Report Type: Spontaneous
  Country: US (occurrence: US)
  Receive Date: 20140305
  Receipt Date: 20140305
  Transmission Date: 20141002
  Serious: No
  Sender: FDA-Public Use
  Company Number: US-ABBVIE-13P-163-1125642-00

PATIENT
  Age: 56 Year
  Sex: Female
  Weight: 65.83 kg

DRUGS (9)
  1. HUMIRA [Suspect]
     Indication: RHEUMATOID ARTHRITIS
     Dates: start: 2011, end: 201307
  2. METHOTREXATE [Concomitant]
     Indication: PRODUCT USED FOR UNKNOWN INDICATION
  3. NABUMETONE [Concomitant]
     Indication: RHEUMATOID ARTHRITIS
  4. DIPHENHYDRAMINE [Concomitant]
     Indication: HYPERSENSITIVITY
  5. FOLIC ACID [Concomitant]
     Indication: VITAMIN SUPPLEMENTATION
  6. WOMEN^S CENTRUM [Concomitant]
     Indication: VITAMIN SUPPLEMENTATION
  7. VITAMIN E [Concomitant]
     Indication: IMMUNE ENHANCEMENT THERAPY
  8. FISH OIL [Concomitant]
     Indication: BLOOD CHOLESTEROL INCREASED
  9. FISH OIL [Concomitant]
     Indication: ARTHROPATHY

REACTIONS (1)
  - Cough [Recovered/Resolved]
